FAERS Safety Report 22284828 (Version 1)
Quarter: 2023Q2

REPORT INFORMATION
  Report Type: Spontaneous
  Country: US (occurrence: US)
  Receive Date: 20230504
  Receipt Date: 20230504
  Transmission Date: 20230722
  Serious: No
  Sender: FDA-Public Use
  Company Number: US-ABBVIE-4752356

PATIENT
  Age: 59 Year
  Sex: Male

DRUGS (18)
  1. VENCLEXTA [Suspect]
     Active Substance: VENETOCLAX
     Indication: Plasma cell myeloma
     Dosage: TAKE 4 TABLET(S) BY MOUTH DAILY   FORM STRENGTH - 100 MG
     Route: 048
  2. VITAMIN B12 [Concomitant]
     Active Substance: CYANOCOBALAMIN
     Indication: Product used for unknown indication
     Dosage: FORM STRENGTH - 1000 MICROGRAM
     Route: 048
  3. POTASSIUM CHLORIDE [Concomitant]
     Active Substance: POTASSIUM CHLORIDE
     Indication: Product used for unknown indication
     Dosage: 20 MEQC,  TAKE 2 TABLET PO ONCE DAILY X 5 DAYS
     Route: 048
  4. BACTRIM DS [Concomitant]
     Active Substance: SULFAMETHOXAZOLE\TRIMETHOPRIM
     Indication: Product used for unknown indication
     Dosage: 800MG-160 MG TABLET
     Route: 048
  5. LIDODERM [Concomitant]
     Active Substance: LIDOCAINE
     Indication: Product used for unknown indication
     Dosage: 5% PATCH,  APPLY ONE PATCH TO AFFECTED AREA FOR 12 HOURS AND REMOVE FOR 12 HOURS DAILY  FORM STRE...
     Route: 061
  6. VALSARTAN [Concomitant]
     Active Substance: VALSARTAN
     Indication: Product used for unknown indication
     Route: 048
  7. PROMETHAZINE DM [Concomitant]
     Active Substance: DEXTROMETHORPHAN HYDROBROMIDE\PROMETHAZINE HYDROCHLORIDE
     Indication: Cough
     Dosage: 6.25 MG-15 MG /5ML ORAL SYRUP, TAKE 5 ML AT NIGHT PRN FOR COUGH?FORM STRENGTH - 5 MILLILITERS
     Route: 048
  8. FLONASE ALLERGY RELIEF [Concomitant]
     Active Substance: FLUTICASONE PROPIONATE
     Indication: Nasal congestion
     Dosage: 1 SPRAY IN EACH NOSTRIL DAILY PRN FOR NASAL CONGESTION?FORM STRENGTH - 50 MICROGRAM
     Route: 045
  9. Men^s One [Concomitant]
     Indication: Product used for unknown indication
     Dosage: 400MCG-20MCG-300MCG TABLET
     Route: 048
  10. OMEPRAZOLE [Concomitant]
     Active Substance: OMEPRAZOLE
     Indication: Product used for unknown indication
     Dosage: 1 P.O.Q DAY FORM STRENGTH - 40 MG
     Route: 048
  11. ELIQUIS [Concomitant]
     Active Substance: APIXABAN
     Indication: Product used for unknown indication
     Dosage: TWO TABS TWICE A DAILY FOR ONE WEEK FOLLOWED `BY ONE TAB TWICE DAILY?FORM STRENGTH - 5 MG
     Route: 048
  12. BUPROPION HYDROCHLORIDE [Concomitant]
     Active Substance: BUPROPION HYDROCHLORIDE
     Indication: Product used for unknown indication
     Dosage: 1 P.O.Q DAY  FORM STRENGTH - 300 MG
     Route: 048
  13. CARVEDILOL [Concomitant]
     Active Substance: CARVEDILOL
     Indication: Product used for unknown indication
     Dosage: 1/2 P.O TWICE A DAY (BID)  FORM STRENGTH - 12.5 MG
     Route: 048
  14. CYCLOBENZAPRINE [Concomitant]
     Active Substance: CYCLOBENZAPRINE
     Indication: Product used for unknown indication
     Dosage: PRN  FORM STRENGTH - 10 MG
  15. LORAZEPAM [Concomitant]
     Active Substance: LORAZEPAM
     Indication: Nausea
     Dosage: TIME INTERVAL: 0.33333333 DAYS: 1 PO 3 TIMES A DAY PRN NAUSEA(DO NOT DRIVE/OPERATE EQUIPMENT WHIL...
     Route: 048
  16. VITAMIN B COMPLEX [Concomitant]
     Active Substance: CYANOCOBALAMIN\DEXPANTHENOL\NIACINAMIDE\PYRIDOXINE HYDROCHLORIDE\RIBOFLAVIN 5^-PHOSPHATE SODIUM\THIA
     Indication: Product used for unknown indication
     Dosage: 1 P.O.Q DAY
     Route: 048
  17. HYDROXYZINE HYDROCHLORIDE [Concomitant]
     Active Substance: HYDROXYZINE HYDROCHLORIDE
     Indication: Product used for unknown indication
     Dosage: FORM STRENGTH - 25 MG
     Route: 048
  18. SHINGRIX [Concomitant]
     Active Substance: RECOMBINANT VARICELLA ZOSTER VIRUS (VZV) GLYCOPROTEIN E
     Indication: Product used for unknown indication
     Dosage: 50MCG/0.5ML SUSPENSION
     Route: 030

REACTIONS (3)
  - Malaise [Unknown]
  - Arthralgia [Unknown]
  - Product use in unapproved indication [Unknown]

NARRATIVE: CASE EVENT DATE: 20230428
